FAERS Safety Report 9101761 (Version 1)
Quarter: 2013Q1

REPORT INFORMATION
  Report Type: Spontaneous
  Country: GB (occurrence: GB)
  Receive Date: 20130218
  Receipt Date: 20130218
  Transmission Date: 20140127
  Serious: Yes (Life-Threatening, Hospitalization, Other)
  Sender: FDA-Public Use
  Company Number: GB-009507513-1302GBR006304

PATIENT
  Age: 72 Year
  Sex: Male
  Weight: 78 kg

DRUGS (4)
  1. ALENDRONATE SODIUM [Suspect]
     Indication: STEROID THERAPY
     Dosage: 70 MG, QW
     Route: 048
     Dates: start: 20121228, end: 20130105
  2. ADCAL-D3 [Concomitant]
  3. OMEPRAZOLE [Concomitant]
  4. PREDNISOLONE [Concomitant]

REACTIONS (1)
  - Oesophageal varices haemorrhage [Recovered/Resolved with Sequelae]
